FAERS Safety Report 6654695-2 (Version None)
Quarter: 2010Q1

REPORT INFORMATION
  Report Type: 
  Country: None (occurrence: None)
  Receive Date: 20100326
  Receipt Date: 20100316
  Transmission Date: 20100710
  Serious: Yes (Hospitalization)
  Sender: FDA-Public Use
  Company Number: IT-ABBOTT-10P-083-0623184-00

PATIENT
  Sex: Male

DRUGS (2)
  1. CLARITHROMYCIN [Suspect]
     Indication: HELICOBACTER INFECTION
     Dosage: 1 UNIT: 1 DAYS
     Route: 048
     Dates: start: 20091215, end: 20091215
  2. METRONIDAZOLO [Suspect]
     Indication: HELICOBACTER INFECTION
     Dosage: 1 UNIT: 1 DAYS
     Route: 048
     Dates: start: 20091215, end: 20091215

REACTIONS (4)
  - LARYNGEAL OEDEMA [None]
  - LIP OEDEMA [None]
  - PALMAR ERYTHEMA [None]
  - PRURITUS [None]
